FAERS Safety Report 18569814 (Version 1)
Quarter: 2020Q4

REPORT INFORMATION
  Report Type: Spontaneous
  Country: US (occurrence: US)
  Receive Date: 20201202
  Receipt Date: 20201202
  Transmission Date: 20210114
  Serious: No
  Sender: FDA-Public Use
  Company Number: None

PATIENT
  Sex: Female

DRUGS (1)
  1. OTEZLA [Suspect]
     Active Substance: APREMILAST
     Indication: PSORIATIC ARTHROPATHY
     Dosage: TEZLA TITRATION PACK 10/20/30MG, TAKE ORALLY. DAY 1:10MG IN AM. DAY 2: 10MG IN AM +?PM. DAY 3: 10MG IN AM + 20MG IN PM. DAY 4:20MG IN AM + PM. DAY 5: 20MG IN AM + 30MG IN PM. THEN?30 MG 2 TIMES DAILY.
     Route: 048
     Dates: start: 20201103

REACTIONS (1)
  - Drug ineffective [None]
